FAERS Safety Report 6547831-X (Version None)
Quarter: 2010Q1

REPORT INFORMATION
  Report Type: 
  Country: None (occurrence: None)
  Receive Date: 20100124
  Receipt Date: 20091015
  Transmission Date: 20100710
  Serious: Yes (Death)
  Sender: FDA-Public Use
  Company Number: US-ALEXION-A200900833

PATIENT
  Sex: Male

DRUGS (9)
  1. SOLIRIS [Suspect]
     Indication: PAROXYSMAL NOCTURNAL HAEMOGLOBINURIA
     Dosage: 600 MG, QW
     Dates: start: 20090903
  2. SELENIUM [Concomitant]
     Route: 048
  3. OSTEO BI-FLEX [Concomitant]
     Route: 048
  4. OXYCONTIN [Concomitant]
     Route: 048
  5. VICODIN [Concomitant]
     Dosage: UNK
     Route: 048
  6. FOLIC ACID [Concomitant]
     Dosage: UNK
     Route: 048
  7. SYNTHROID [Concomitant]
     Dosage: UNK
     Route: 048
  8. VESICARE [Concomitant]
     Dosage: UNK
     Route: 048
  9. MILK OF MAGNESIA TAB [Concomitant]
     Route: 048

REACTIONS (1)
  - DEATH [None]
